FAERS Safety Report 8583786-4 (Version None)
Quarter: 2012Q3

REPORT INFORMATION
  Report Type: 
  Country: None (occurrence: None)
  Receive Date: 20120810
  Receipt Date: 20120730
  Transmission Date: 20120928
  Serious: Yes (Other)
  Sender: FDA-Public Use
  Company Number: JP-009507513-1208JPN001959

PATIENT

DRUGS (1)
  1. FAMOTIDINE [Suspect]
     Dosage: 10 MG, BID
     Route: 048
     Dates: start: 20120710, end: 20120701

REACTIONS (2)
  - ABDOMINAL DISTENSION [None]
  - APHAGIA [None]
